FAERS Safety Report 8826380 (Version 1)
Quarter: 2012Q4

REPORT INFORMATION
  Report Type: Report from Study
  Country: JP (occurrence: JP)
  Receive Date: 20121005
  Receipt Date: 20121005
  Transmission Date: 20130627
  Serious: Yes (Other)
  Sender: FDA-Public Use
  Company Number: JP-SANOFI-AVENTIS-2012SA072550

PATIENT
  Age: 78 Year
  Sex: Female
  Weight: 54 kg

DRUGS (34)
  1. CLOPIDOGREL BISULFATE [Suspect]
     Indication: NON ST SEGMENT ELEVATION MYOCARDIAL INFARCTION
     Dosage: maintenance dose
     Route: 065
     Dates: start: 20110219, end: 20110221
  2. CLOPIDOGREL BISULFATE [Suspect]
     Indication: NON ST SEGMENT ELEVATION MYOCARDIAL INFARCTION
     Route: 065
     Dates: start: 20110218, end: 20110218
  3. BAYASPIRIN [Concomitant]
     Indication: NON ST SEGMENT ELEVATION MYOCARDIAL INFARCTION
     Dates: start: 20110219
  4. BAYASPIRIN [Concomitant]
     Indication: NON ST SEGMENT ELEVATION MYOCARDIAL INFARCTION
     Dates: start: 20110218, end: 20110218
  5. PLAVIX [Concomitant]
     Indication: NON ST SEGMENT ELEVATION MYOCARDIAL INFARCTION
     Dates: start: 20110222
  6. MOBIC [Concomitant]
     Dates: start: 20110228
  7. PARIET [Concomitant]
     Dates: start: 20110218
  8. NICORANDIL [Concomitant]
     Dates: start: 20110220
  9. CRESTOR /UNK/ [Concomitant]
     Dates: start: 20110220
  10. BIOFERMIN R [Concomitant]
     Dates: start: 20110222
  11. RHYTHMY [Concomitant]
     Dates: start: 20110301, end: 20110307
  12. CRAVIT [Concomitant]
     Dates: start: 20110227
  13. FUROSEMIDE [Concomitant]
     Dates: start: 20110227
  14. FUROSEMIDE [Concomitant]
     Dates: start: 20110225, end: 20110330
  15. ALDACTONE-A [Concomitant]
     Dates: start: 20110227, end: 20110307
  16. ALOSENN [Concomitant]
     Dates: start: 20110303
  17. HEPARIN ^NOVO^ [Concomitant]
     Indication: NON ST SEGMENT ELEVATION MYOCARDIAL INFARCTION
     Dates: start: 20110218, end: 20110221
  18. SIGMART [Concomitant]
     Indication: NON ST SEGMENT ELEVATION MYOCARDIAL INFARCTION
     Dates: start: 20110218, end: 20110219
  19. FAMOTIDINE [Concomitant]
     Dates: start: 20110218, end: 20110218
  20. HANP [Concomitant]
     Dates: start: 20110221, end: 20110227
  21. KARY UNI [Concomitant]
     Dosage: opthalmic suspension
  22. RIZE [Concomitant]
  23. RHYTHMY [Concomitant]
     Dates: start: 20110225, end: 20110225
  24. DEXAMETHASONE SODIUM PHOSPHATE [Concomitant]
     Dates: start: 20110228, end: 20110228
  25. XYLOCAINE [Concomitant]
     Dates: start: 20110221, end: 20110221
  26. XYLOCAINE [Concomitant]
     Dates: start: 20110228, end: 20110228
  27. ALBUMINAR [Concomitant]
     Dates: start: 20110224, end: 20110224
  28. FENTANYL [Concomitant]
     Dates: start: 20110221, end: 20110221
  29. PROPOFOL [Concomitant]
     Dates: start: 20110221, end: 20110221
  30. ROCURONIUM [Concomitant]
     Dates: start: 20110221, end: 20110221
  31. SELTOUCH [Concomitant]
     Dates: start: 20110226, end: 20110226
  32. CALONAL [Concomitant]
  33. GLYCERIN [Concomitant]
     Dates: start: 20110224, end: 20110224
  34. MOHRUS [Concomitant]
     Dates: start: 20110304, end: 20110304

REACTIONS (1)
  - Vascular pseudoaneurysm [Recovered/Resolved]
